FAERS Safety Report 8588897-5 (Version None)
Quarter: 2012Q3

REPORT INFORMATION
  Report Type: 
  Country: None (occurrence: None)
  Receive Date: 20120813
  Receipt Date: 20120807
  Transmission Date: 20120928
  Serious: Yes (Death)
  Sender: FDA-Public Use
  Company Number: JP-PFIZER INC-2012174081

PATIENT
  Age: 82 Year
  Sex: Male

DRUGS (1)
  1. ZITHROMAX [Suspect]
     Indication: PNEUMONIA
     Dosage: 500 MG DAILY
     Route: 041
     Dates: start: 20120717, end: 20120721

REACTIONS (2)
  - PNEUMONIA [None]
  - BLOOD POTASSIUM INCREASED [None]
